FAERS Safety Report 5524979-X (Version None)
Quarter: 2007Q4

REPORT INFORMATION
  Report Type: 
  Country: None (occurrence: None)
  Receive Date: 20071126
  Receipt Date: 20071119
  Transmission Date: 20080405
  Serious: Yes (Death, Hospitalization)
  Sender: FDA-Public Use
  Company Number: CN-AVENTIS-200719572GDDC

PATIENT
  Age: 73 Year
  Sex: Male
  Weight: 80 kg

DRUGS (4)
  1. TAXOTERE [Suspect]
     Route: 042
     Dates: start: 20070719, end: 20070920
  2. TAXOTERE [Suspect]
  3. PREDNISONE TAB [Suspect]
     Route: 048
     Dates: start: 20070719, end: 20070915
  4. NEUPOGEN [Concomitant]
     Route: 058
     Dates: start: 20070928, end: 20070930

REACTIONS (9)
  - ATELECTASIS [None]
  - COUGH [None]
  - DYSPNOEA [None]
  - INTERSTITIAL LUNG DISEASE [None]
  - LUNG INFECTION [None]
  - PYREXIA [None]
  - RESPIRATORY FAILURE [None]
  - SEPSIS [None]
  - SHOCK [None]
